FAERS Safety Report 9891005 (Version 1)
Quarter: 2014Q1

REPORT INFORMATION
  Report Type: Spontaneous
  Country: US (occurrence: None)
  Receive Date: 20140211
  Receipt Date: 20140211
  Transmission Date: 20141002
  Serious: No
  Sender: FDA-Public Use
  Company Number: None

PATIENT
  Age: 64 Year
  Sex: Female
  Weight: 54.43 kg

DRUGS (4)
  1. ZICAM [Suspect]
     Indication: SNEEZING
     Dosage: SPRAY 4X IN MOUTH?EVERY 3 HRS?BY MOUTH
     Route: 048
     Dates: end: 20140206
  2. ZICAM [Suspect]
     Indication: OROPHARYNGEAL PAIN
     Dosage: SPRAY 4X IN MOUTH?EVERY 3 HRS?BY MOUTH
     Route: 048
     Dates: end: 20140206
  3. NIACIN [Concomitant]
  4. CALCIUM [Concomitant]

REACTIONS (2)
  - Dysgeusia [None]
  - Nausea [None]
